FAERS Safety Report 19645486 (Version 1)
Quarter: 2021Q3

REPORT INFORMATION
  Report Type: Spontaneous
  Country: US (occurrence: US)
  Receive Date: 20210730
  Receipt Date: 20210730
  Transmission Date: 20211014
  Serious: No
  Sender: FDA-Public Use
  Company Number: None

PATIENT
  Sex: Male
  Weight: 135.45 kg

DRUGS (22)
  1. ACYCLOVIR. [Concomitant]
     Active Substance: ACYCLOVIR
  2. PROPRANOLOL [Concomitant]
     Active Substance: PROPRANOLOL HYDROCHLORIDE
  3. ZOFRAN [Concomitant]
     Active Substance: ONDANSETRON HYDROCHLORIDE
  4. CENTRUM [Concomitant]
     Active Substance: VITAMINS
  5. HYDROCHLOROTHIAZIDE. [Concomitant]
     Active Substance: HYDROCHLOROTHIAZIDE
  6. NITROGLYCERIN. [Concomitant]
     Active Substance: NITROGLYCERIN
  7. ECONAZOLE. [Concomitant]
     Active Substance: ECONAZOLE NITRATE
  8. VITAMIN B?COMPLEX [Concomitant]
     Active Substance: DEXPANTHENOL\NIACINAMIDE\PYRIDOXINE HYDROCHLORIDE\RIBOFLAVIN 5^-PHOSPHATE SODIUM\THIAMINE HYDROCHLORIDE
  9. ALBUTEROL SULFATE. [Concomitant]
     Active Substance: ALBUTEROL SULFATE
  10. ALLEGRA ALLERY [Concomitant]
  11. FEXOFENADINE [Concomitant]
     Active Substance: FEXOFENADINE HYDROCHLORIDE
  12. COLESTIPOL [Concomitant]
     Active Substance: COLESTIPOL
  13. FLOMAX [Concomitant]
     Active Substance: TAMSULOSIN HYDROCHLORIDE
  14. PROMACTA [Concomitant]
     Active Substance: ELTROMBOPAG OLAMINE
  15. DYMISTA [Concomitant]
     Active Substance: AZELASTINE HYDROCHLORIDE\FLUTICASONE PROPIONATE
  16. KLOR?CON [Concomitant]
     Active Substance: POTASSIUM CHLORIDE
  17. LOSARTAN. [Concomitant]
     Active Substance: LOSARTAN
  18. ELIQUIS [Concomitant]
     Active Substance: APIXABAN
  19. LORATADINE. [Concomitant]
     Active Substance: LORATADINE
  20. TEMOZOLOMIDE. [Suspect]
     Active Substance: TEMOZOLOMIDE
     Indication: LUNG NEOPLASM MALIGNANT
     Dosage: ?          OTHER FREQUENCY:QD 1?7 AND 15?21;?
     Route: 048
  21. LASIX [Concomitant]
     Active Substance: FUROSEMIDE
  22. TRELEGY ELLIPTA [Concomitant]
     Active Substance: FLUTICASONE FUROATE\UMECLIDINIUM BROMIDE\VILANTEROL TRIFENATATE

REACTIONS (1)
  - Thrombocytopenia [None]
